FAERS Safety Report 6379109-1 (Version None)
Quarter: 2009Q3

REPORT INFORMATION
  Report Type: 
  Country: None (occurrence: None)
  Receive Date: 20090923
  Receipt Date: 20090923
  Transmission Date: 20100115
  Serious: No
  Sender: FDA-Public Use
  Company Number: None

PATIENT
  Age: 77 Year
  Sex: Female
  Weight: 59 kg

DRUGS (1)
  1. MORPHINE [Suspect]
     Indication: PAIN
     Dosage: 15MG IV W/I 2HRS
     Route: 042
     Dates: start: 20090520

REACTIONS (4)
  - BLOOD CREATININE INCREASED [None]
  - HYPOTENSION [None]
  - LETHARGY [None]
  - SEDATION [None]
